FAERS Safety Report 12305837 (Version 1)
Quarter: 2016Q2

REPORT INFORMATION
  Report Type: Spontaneous
  Country: DE (occurrence: DE)
  Receive Date: 20160426
  Receipt Date: 20160426
  Transmission Date: 20160815
  Serious: Yes (Other)
  Sender: FDA-Public Use
  Company Number: DE-PFIZER INC-2016223274

PATIENT
  Age: 72 Year
  Sex: Female

DRUGS (1)
  1. LATANOPROST PFIZER [Suspect]
     Active Substance: LATANOPROST
     Dosage: UNK
     Dates: start: 201602

REACTIONS (8)
  - Heart rate decreased [Unknown]
  - Pigmentation disorder [Unknown]
  - Product quality issue [Unknown]
  - Restlessness [Unknown]
  - Incorrect dose administered [Unknown]
  - Heart rate increased [Unknown]
  - Urine odour abnormal [Unknown]
  - Renal pain [Unknown]
